FAERS Safety Report 22133353 (Version 1)
Quarter: 2023Q1

REPORT INFORMATION
  Report Type: Spontaneous
  Country: US (occurrence: US)
  Receive Date: 20230324
  Receipt Date: 20230324
  Transmission Date: 20230417
  Serious: Yes (Other)
  Sender: FDA-Public Use
  Company Number: US-BAXTER-2023BAX015844

PATIENT
  Age: 41 Year
  Sex: Female

DRUGS (1)
  1. DOXORUBICIN [Suspect]
     Active Substance: DOXORUBICIN
     Indication: Rhabdomyosarcoma
     Route: 065

REACTIONS (7)
  - Myocardial infarction [Unknown]
  - Peripartum cardiomyopathy [Unknown]
  - Chest pain [Unknown]
  - Dyspnoea [Unknown]
  - Disease progression [Unknown]
  - Ejection fraction decreased [Unknown]
  - Left ventricular dysfunction [Unknown]
